FAERS Safety Report 15220900 (Version 6)
Quarter: 2018Q3

REPORT INFORMATION
  Report Type: Spontaneous
  Country: US (occurrence: US)
  Receive Date: 20180731
  Receipt Date: 20180928
  Transmission Date: 20181010
  Serious: Yes (Other)
  Sender: FDA-Public Use
  Company Number: US-ASTRAZENECA-2018SE96373

PATIENT
  Age: 31 Year
  Sex: Female

DRUGS (14)
  1. SEROQUEL [Suspect]
     Active Substance: QUETIAPINE FUMARATE
     Indication: BIPOLAR DISORDER
     Dosage: 200.0MG UNKNOWN
     Route: 048
     Dates: start: 2003
  2. SEROQUEL [Suspect]
     Active Substance: QUETIAPINE FUMARATE
     Indication: BIPOLAR DISORDER
     Dosage: QUETIAPINE FUMARATE, 200 MG FIVE TIMES A DAY UNKNOWN
     Route: 048
     Dates: start: 2003
  3. SEROQUEL [Suspect]
     Active Substance: QUETIAPINE FUMARATE
     Indication: INSOMNIA
     Dosage: QUETIAPINE FUMARATE, 200 MG FIVE TIMES A DAY UNKNOWN
     Route: 048
     Dates: start: 2003
  4. SEROQUEL [Suspect]
     Active Substance: QUETIAPINE FUMARATE
     Indication: INSOMNIA
     Dosage: 200.0MG UNKNOWN
     Route: 048
     Dates: start: 2003
  5. LAMOTRIGINE. [Concomitant]
     Active Substance: LAMOTRIGINE
     Dosage: 25 MG, THE FIRST DAY SHE TOOK HALF A PILL, THE NEXT DAY 1 PILL, THE FOLLOWING DAY 2 PILLS
     Dates: end: 20180718
  6. DOXEPIN [Concomitant]
     Active Substance: DOXEPIN
  7. SEROQUEL [Suspect]
     Active Substance: QUETIAPINE FUMARATE
     Indication: INSOMNIA
     Dosage: 1000.0MG UNKNOWN
     Route: 048
     Dates: start: 2002
  8. SEROQUEL [Suspect]
     Active Substance: QUETIAPINE FUMARATE
     Indication: INSOMNIA
     Dosage: 1000 MG OF SEROQUEL AT NIGHT FOR SLEEP UNKNOWN
     Route: 048
  9. SEROQUEL [Suspect]
     Active Substance: QUETIAPINE FUMARATE
     Indication: BIPOLAR DISORDER
     Dosage: 100.0MG UNKNOWN
     Route: 048
     Dates: start: 201804, end: 20180717
  10. CANNABIS [Concomitant]
     Active Substance: CANNABIS SATIVA SUBSP. INDICA TOP
     Dosage: UNKNOWN
     Route: 050
  11. XANAX [Concomitant]
     Active Substance: ALPRAZOLAM
     Indication: BIPOLAR DISORDER
     Route: 048
     Dates: start: 2008
  12. SEROQUEL [Suspect]
     Active Substance: QUETIAPINE FUMARATE
     Indication: BIPOLAR DISORDER
     Dosage: 1000.0MG UNKNOWN
     Route: 048
     Dates: start: 2002
  13. SEROQUEL [Suspect]
     Active Substance: QUETIAPINE FUMARATE
     Indication: INSOMNIA
     Dosage: 100.0MG UNKNOWN
     Route: 048
     Dates: start: 201804, end: 20180717
  14. SEROQUEL [Suspect]
     Active Substance: QUETIAPINE FUMARATE
     Indication: BIPOLAR DISORDER
     Dosage: 1000 MG OF SEROQUEL AT NIGHT FOR SLEEP UNKNOWN
     Route: 048

REACTIONS (24)
  - Stillbirth [Unknown]
  - Abortion spontaneous [Unknown]
  - Product use in unapproved indication [Unknown]
  - Hyperhidrosis [Unknown]
  - Influenza like illness [Unknown]
  - Nausea [Unknown]
  - Obesity [Unknown]
  - Heart rate increased [Unknown]
  - Off label use [Unknown]
  - Suicidal ideation [Recovered/Resolved]
  - Insomnia [Unknown]
  - Oxygen saturation decreased [Unknown]
  - Anger [Unknown]
  - Constipation [Unknown]
  - Malaise [Unknown]
  - Exposure during pregnancy [Recovered/Resolved]
  - Weight decreased [Not Recovered/Not Resolved]
  - Suicide attempt [Unknown]
  - Homicidal ideation [Unknown]
  - Diarrhoea [Unknown]
  - Decreased appetite [Not Recovered/Not Resolved]
  - Intentional product misuse [Unknown]
  - Pain [Unknown]
  - Disturbance in attention [Unknown]

NARRATIVE: CASE EVENT DATE: 2008
